FAERS Safety Report 5424826-0 (Version None)
Quarter: 2007Q3

REPORT INFORMATION
  Report Type: 
  Country: None (occurrence: None)
  Receive Date: 20070822
  Receipt Date: 20070807
  Transmission Date: 20080115
  Serious: Yes (Other)
  Sender: FDA-Public Use
  Company Number: ENT-2007-0086

PATIENT
  Age: 68 Year
  Sex: Female
  Weight: 57.82 kg

DRUGS (5)
  1. COMTAN [Suspect]
     Indication: PARKINSON'S DISEASE
     Dosage: 600 MG, 3 IN 1 D, ORAL
     Route: 048
     Dates: start: 20070507, end: 20070521
  2. SINEMET [Concomitant]
  3. SINEMET CR [Concomitant]
  4. EFFEXOR XR [Concomitant]
  5. ACTONEL [Concomitant]

REACTIONS (2)
  - DRUG INTOLERANCE [None]
  - HALLUCINATION [None]
